FAERS Safety Report 24945099 (Version 2)
Quarter: 2025Q1

REPORT INFORMATION
  Report Type: Spontaneous
  Country: US (occurrence: US)
  Receive Date: 20250208
  Receipt Date: 20250307
  Transmission Date: 20250408
  Serious: Yes (Hospitalization)
  Sender: TEVA
  Company Number: US-TEVA-VS-3293545

PATIENT
  Age: 79 Year
  Sex: Male

DRUGS (21)
  1. BACLOFEN [Suspect]
     Active Substance: BACLOFEN
     Indication: Chronic kidney disease
     Route: 065
     Dates: start: 20241002, end: 20241014
  2. CHOLECALCIFEROL [Suspect]
     Active Substance: CHOLECALCIFEROL
     Indication: Vitamin supplementation
     Route: 048
     Dates: start: 20210702
  3. ALLOPURINOL [Suspect]
     Active Substance: ALLOPURINOL
     Indication: Gout
     Route: 048
     Dates: start: 20211015
  4. PREGABALIN [Suspect]
     Active Substance: PREGABALIN
     Indication: Neuropathy peripheral
     Route: 048
     Dates: start: 20220124, end: 20241015
  5. FLOMAX [Suspect]
     Active Substance: TAMSULOSIN HYDROCHLORIDE
     Indication: Benign prostatic hyperplasia
     Route: 048
     Dates: start: 20230208
  6. VENLAFAXINE [Suspect]
     Active Substance: VENLAFAXINE HYDROCHLORIDE
     Indication: Neuropathy peripheral
     Route: 048
     Dates: start: 20230207, end: 20241014
  7. RENVELA [Suspect]
     Active Substance: SEVELAMER CARBONATE
     Indication: End stage renal disease
     Route: 048
     Dates: start: 20240814
  8. TORSEMIDE [Suspect]
     Active Substance: TORSEMIDE
     Indication: Chronic left ventricular failure
     Route: 048
     Dates: start: 20200821
  9. CALCIUM CHLORIDE\DEXTROSE\MAGNESIUM CHLORIDE\SODIUM CHLORIDE\SODIUM LA [Suspect]
     Active Substance: CALCIUM CHLORIDE\DEXTROSE\MAGNESIUM CHLORIDE\SODIUM CHLORIDE\SODIUM LACTATE
     Indication: Chronic kidney disease
     Route: 065
     Dates: start: 20210215
  10. PROTONIX [Suspect]
     Active Substance: PANTOPRAZOLE SODIUM
     Indication: Gastrooesophageal reflux disease
     Dosage: USE IN A HOSPITAL SETTING PRIMARILY TO PREVENT STRESS ULCERS IN CRITICALLY ILL PATIENTS AT RISK O...
     Route: 048
     Dates: start: 20180905
  11. ELIQUIS [Suspect]
     Active Substance: APIXABAN
     Indication: Cerebrovascular accident
     Route: 065
     Dates: start: 20210511
  12. CALCIUM CARBONATE\ERGOCALCIFEROL\RETINOL [Suspect]
     Active Substance: CALCIUM CARBONATE\ERGOCALCIFEROL\RETINOL
     Indication: Vitamin supplementation
     Route: 048
     Dates: start: 20210702
  13. AMITRIPTYLINE [Suspect]
     Active Substance: AMITRIPTYLINE
     Indication: Neuropathy peripheral
     Route: 048
     Dates: start: 20211129
  14. SILVER SULFADIAZINE [Suspect]
     Active Substance: SILVER SULFADIAZINE
     Indication: Dermatitis contact
     Dosage: A THIN LAYER
     Route: 061
     Dates: start: 20220111
  15. MIDODRINE [Suspect]
     Active Substance: MIDODRINE
     Indication: Chronic left ventricular failure
     Route: 048
     Dates: start: 20230809
  16. FERROUS SULFATE [Suspect]
     Active Substance: FERROUS SULFATE
     Indication: Anaemia
     Route: 048
     Dates: start: 20230525
  17. PHOSLO [Suspect]
     Active Substance: CALCIUM ACETATE
     Indication: End stage renal disease
     Route: 048
     Dates: start: 20240814
  18. ACORAMIDIS [Suspect]
     Active Substance: ACORAMIDIS
     Indication: Product used for unknown indication
     Route: 065
     Dates: start: 20180829, end: 20241014
  19. DUTASTERIDE [Suspect]
     Active Substance: DUTASTERIDE
     Indication: Product used for unknown indication
     Route: 048
  20. MUPIROCIN [Suspect]
     Active Substance: MUPIROCIN
     Indication: Product used for unknown indication
     Route: 061
  21. KEFLEX [Suspect]
     Active Substance: CEPHALEXIN
     Indication: Sepsis
     Route: 048
     Dates: start: 20241010, end: 20241021

REACTIONS (7)
  - Metabolic encephalopathy [Recovered/Resolved with Sequelae]
  - Hypotension [Unknown]
  - Mental status changes [Unknown]
  - Toxicity to various agents [Unknown]
  - Hypotension [Unknown]
  - Asthenia [Unknown]
  - Fall [Recovered/Resolved]

NARRATIVE: CASE EVENT DATE: 20241015
